FAERS Safety Report 9831605 (Version 1)
Quarter: 2014Q1

REPORT INFORMATION
  Report Type: Spontaneous
  Country: US (occurrence: US)
  Receive Date: 20140121
  Receipt Date: 20140121
  Transmission Date: 20141002
  Serious: No
  Sender: FDA-Public Use
  Company Number: US-PFIZER INC-2014017276

PATIENT
  Age: 56 Year
  Sex: Female
  Weight: 81.18 kg

DRUGS (4)
  1. LYRICA [Suspect]
     Indication: FIBROMYALGIA
     Dosage: 50 MG, DAILY
     Dates: start: 2013, end: 201312
  2. LYRICA [Suspect]
     Dosage: 100 MG, DAILY
     Dates: start: 201312
  3. ZETIA [Concomitant]
     Indication: BLOOD CHOLESTEROL INCREASED
     Dosage: 10 MG, DAILY
  4. TRAZODONE [Concomitant]
     Indication: INSOMNIA
     Dosage: 50 MG, DAILY

REACTIONS (4)
  - Agitation [Unknown]
  - Thinking abnormal [Unknown]
  - Poor quality sleep [Unknown]
  - Crying [Unknown]
